FAERS Safety Report 9929539 (Version 2)
Quarter: 2014Q2

REPORT INFORMATION
  Report Type: Spontaneous
  Country: US (occurrence: US)
  Receive Date: 20140227
  Receipt Date: 20140409
  Transmission Date: 20141212
  Serious: Yes (Life-Threatening, Hospitalization)
  Sender: FDA-Public Use
  Company Number: US-INCYTE CORPORATION-2014IN000450

PATIENT
  Age: 40 Year
  Sex: Female
  Weight: 64.4 kg

DRUGS (3)
  1. JAKAFI [Suspect]
     Dosage: 5 MG, BID
     Route: 048
     Dates: start: 2014
  2. JAKAFI [Suspect]
     Dosage: 10 MG, BID
     Route: 048
  3. LOVENOX [Suspect]

REACTIONS (1)
  - Gastrointestinal haemorrhage [Recovered/Resolved]
